FAERS Safety Report 16564085 (Version 1)
Quarter: 2019Q3

REPORT INFORMATION
  Report Type: Spontaneous
  Country: US (occurrence: US)
  Receive Date: 20190712
  Receipt Date: 20190712
  Transmission Date: 20191004
  Serious: No
  Sender: FDA-Public Use
  Company Number: US-CIPLA LTD.-2019US04605

PATIENT

DRUGS (6)
  1. TESTOSTERONE. [Concomitant]
     Active Substance: TESTOSTERONE
     Indication: HYPOGONADISM MALE
  2. TESTOSTERONE. [Suspect]
     Active Substance: TESTOSTERONE
     Indication: HYPOGONADISM MALE
  3. TESTOSTERONE. [Concomitant]
     Active Substance: TESTOSTERONE
     Indication: BLOOD TESTOSTERONE DECREASED
  4. TESTOSTERONE. [Suspect]
     Active Substance: TESTOSTERONE
     Indication: HYPERPITUITARISM
     Dosage: 0.25 MILLILITER (50 MILLIGRAM), ONCE A WEEK
     Route: 065
  5. TESTOSTERONE. [Suspect]
     Active Substance: TESTOSTERONE
     Indication: BLOOD TESTOSTERONE DECREASED
  6. TESTOSTERONE. [Concomitant]
     Active Substance: TESTOSTERONE
     Indication: HYPERPITUITARISM
     Dosage: UNK, PATCH
     Route: 065
     Dates: start: 2017

REACTIONS (3)
  - Product dose omission [Unknown]
  - Product container issue [Unknown]
  - Wrong technique in product usage process [Unknown]

NARRATIVE: CASE EVENT DATE: 20190616
